FAERS Safety Report 24029866 (Version 1)
Quarter: 2024Q2

REPORT INFORMATION
  Report Type: Spontaneous
  Country: US (occurrence: None)
  Receive Date: 20240628
  Receipt Date: 20240628
  Transmission Date: 20240716
  Serious: No
  Sender: FDA-Public Use
  Company Number: None

PATIENT
  Sex: 0

DRUGS (1)
  1. OCREVUS [Suspect]
     Active Substance: OCRELIZUMAB

REACTIONS (5)
  - Blood pressure increased [None]
  - Blood glucose increased [None]
  - Migraine [None]
  - Product prescribing error [None]
  - Refusal of treatment by patient [None]

NARRATIVE: CASE EVENT DATE: 20240627
